FAERS Safety Report 14885731 (Version 2)
Quarter: 2018Q2

REPORT INFORMATION
  Report Type: Spontaneous
  Country: US (occurrence: US)
  Receive Date: 20180511
  Receipt Date: 20180518
  Transmission Date: 20180711
  Serious: Yes (Other)
  Sender: FDA-Public Use
  Company Number: US-JNJFOC-20180507607

PATIENT
  Sex: Male

DRUGS (1)
  1. LISTERINE POCKETMIST [Suspect]
     Active Substance: EUCALYPTOL\MENTHOL\THYMOL
     Indication: PRODUCT USED FOR UNKNOWN INDICATION
     Route: 048
     Dates: start: 20180503

REACTIONS (2)
  - Suicidal ideation [Unknown]
  - Incorrect route of drug administration [Unknown]

NARRATIVE: CASE EVENT DATE: 20180503
